FAERS Safety Report 25572581 (Version 1)
Quarter: 2025Q3

REPORT INFORMATION
  Report Type: Report from Study
  Country: US (occurrence: US)
  Receive Date: 20250717
  Receipt Date: 20250717
  Transmission Date: 20251021
  Serious: Yes (Hospitalization)
  Sender: EISAI
  Company Number: US-Eisai-EC-2025-193135

PATIENT
  Age: 76 Year
  Sex: Female

DRUGS (6)
  1. LENVIMA [Suspect]
     Active Substance: LENVATINIB
     Indication: Uterine cancer
     Dosage: STOPPED: FEB//2025
     Dates: start: 20250217
  2. LENVIMA [Suspect]
     Active Substance: LENVATINIB
     Dates: start: 202502, end: 202502
  3. LENVIMA [Suspect]
     Active Substance: LENVATINIB
     Dates: start: 202502, end: 20250226
  4. LENVIMA [Suspect]
     Active Substance: LENVATINIB
     Dates: start: 20250227, end: 20250323
  5. LENVIMA [Suspect]
     Active Substance: LENVATINIB
     Dosage: STOPPED: //2025
     Dates: start: 20250324
  6. OXYCODONE [Concomitant]
     Active Substance: OXYCODONE

REACTIONS (3)
  - Gastrointestinal haemorrhage [Recovered/Resolved]
  - Oral infection [Unknown]
  - Impaired healing [Unknown]

NARRATIVE: CASE EVENT DATE: 20250101
